FAERS Safety Report 18234229 (Version 1)
Quarter: 2020Q3

REPORT INFORMATION
  Report Type: Spontaneous
  Country: FR (occurrence: FR)
  Receive Date: 20200904
  Receipt Date: 20200904
  Transmission Date: 20201103
  Serious: Yes (Hospitalization)
  Sender: FDA-Public Use
  Company Number: FR-TAKEDA-2020TUS037443

PATIENT
  Age: 4 Year
  Sex: Female

DRUGS (2)
  1. BRINTELLIX [Suspect]
     Active Substance: VORTIOXETINE HYDROBROMIDE
     Indication: ACCIDENTAL OVERDOSE
     Dosage: 5 MILLIGRAM
     Route: 048
     Dates: start: 20200110, end: 20200110
  2. BROMAZEPAM [Suspect]
     Active Substance: BROMAZEPAM
     Indication: ACCIDENTAL OVERDOSE
     Dosage: 24 MILLIGRAM
     Route: 048
     Dates: start: 20200110, end: 20200110

REACTIONS (4)
  - Accidental exposure to product by child [Recovered/Resolved]
  - Accidental overdose [Recovered/Resolved]
  - Somnolence [Unknown]
  - Gait disturbance [Unknown]

NARRATIVE: CASE EVENT DATE: 20200110
